FAERS Safety Report 13401284 (Version 1)
Quarter: 2017Q2

REPORT INFORMATION
  Report Type: Spontaneous
  Country: CH (occurrence: CH)
  Receive Date: 20170404
  Receipt Date: 20170404
  Transmission Date: 20170830
  Serious: Yes (Hospitalization)
  Sender: FDA-Public Use
  Company Number: CH-MYLANLABS-2017M1020280

PATIENT

DRUGS (5)
  1. DAFALGAN [Concomitant]
     Active Substance: ACETAMINOPHEN
     Dosage: 2 G, UNK
     Route: 048
     Dates: start: 20160707, end: 20160707
  2. SIRDALUD [Concomitant]
     Active Substance: TIZANIDINE
     Dosage: 4 MG, UNK
     Route: 048
     Dates: start: 20160707, end: 20160707
  3. TARGIN [Interacting]
     Active Substance: NALOXONE HYDROCHLORIDE\OXYCODONE HYDROCHLORIDE
     Indication: CERVICOBRACHIAL SYNDROME
     Route: 048
     Dates: start: 20160707, end: 20160707
  4. BRUFEN [Suspect]
     Active Substance: IBUPROFEN
     Indication: CERVICOBRACHIAL SYNDROME
     Dosage: 600 MG, UNK
     Route: 048
     Dates: start: 20160707
  5. NOVALGIN [Interacting]
     Active Substance: METAMIZOLE SODIUM
     Indication: CERVICOBRACHIAL SYNDROME
     Dosage: 1 G, UNK
     Route: 048
     Dates: start: 20160707, end: 20160707

REACTIONS (1)
  - Syncope [Recovered/Resolved]

NARRATIVE: CASE EVENT DATE: 20160707
